FAERS Safety Report 17038438 (Version 1)
Quarter: 2019Q4

REPORT INFORMATION
  Report Type: Spontaneous
  Country: CN (occurrence: CN)
  Receive Date: 20191115
  Receipt Date: 20191115
  Transmission Date: 20200122
  Serious: Yes (Other)
  Sender: FDA-Public Use
  Company Number: CN-CHEPLA-C20192989

PATIENT
  Age: 5 Year
  Sex: Male

DRUGS (6)
  1. PROPRANOLOL [Suspect]
     Active Substance: PROPRANOLOL HYDROCHLORIDE
     Indication: CHRONIC ACTIVE EPSTEIN-BARR VIRUS INFECTION
     Dosage: AN INITIAL DOSE OF 1.5 - 2MG/KG/D
  2. THALIDOMIDE [Suspect]
     Active Substance: THALIDOMIDE
     Indication: CHRONIC ACTIVE EPSTEIN-BARR VIRUS INFECTION
     Dosage: 2MG/KG/D IN 3 DIVIDED DOSES
  3. GANCICLOVIR. [Suspect]
     Active Substance: GANCICLOVIR
     Indication: CHRONIC ACTIVE EPSTEIN-BARR VIRUS INFECTION
     Dosage: AT THE AGE OF 5 YEARS
  4. METHYLPREDNISOLONE. [Suspect]
     Active Substance: METHYLPREDNISOLONE
     Indication: EPSTEIN-BARR VIRUS INFECTION
  5. GANCICLOVIR. [Suspect]
     Active Substance: GANCICLOVIR
     Indication: EPSTEIN-BARR VIRUS INFECTION
     Dosage: AT AGE OF 2 YEARS AND 7 MONTHS
  6. HYDROCORTISONE. [Suspect]
     Active Substance: HYDROCORTISONE
     Indication: CHRONIC ACTIVE EPSTEIN-BARR VIRUS INFECTION

REACTIONS (3)
  - Product use issue [Recovered/Resolved]
  - Product use in unapproved indication [Recovered/Resolved]
  - Epilepsy [Not Recovered/Not Resolved]
